FAERS Safety Report 12225389 (Version 3)
Quarter: 2016Q2

REPORT INFORMATION
  Report Type: Spontaneous
  Country: US (occurrence: US)
  Receive Date: 20160331
  Receipt Date: 20160526
  Transmission Date: 20160815
  Serious: No
  Sender: FDA-Public Use
  Company Number: US-GLAXOSMITHKLINE-US2016GSK042944

PATIENT
  Age: 64 Year
  Sex: Female
  Weight: 87.75 kg

DRUGS (7)
  1. THORAZINE [Concomitant]
     Active Substance: CHLORPROMAZINE
     Indication: DEPRESSION
     Dosage: 50 MG, UNK
  2. ALBUTEROL SULFATE. [Concomitant]
     Active Substance: ALBUTEROL SULFATE
  3. THORAZINE [Concomitant]
     Active Substance: CHLORPROMAZINE
     Indication: SLEEP DISORDER
  4. THORAZINE [Concomitant]
     Active Substance: CHLORPROMAZINE
     Indication: ANXIETY
  5. ATIVAN [Concomitant]
     Active Substance: LORAZEPAM
  6. CONTRAVE [Suspect]
     Active Substance: BUPROPION HYDROCHLORIDE\NALTREXONE HYDROCHLORIDE
     Indication: OBESITY
     Dosage: UNK, QD
     Route: 048
     Dates: start: 20160105, end: 20160107
  7. WELLBUTRIN [Suspect]
     Active Substance: BUPROPION HYDROCHLORIDE
     Indication: DEPRESSION
     Dosage: 300 MG, QD
     Route: 048

REACTIONS (7)
  - Nausea [Recovered/Resolved]
  - Contraindicated drug administered [Recovered/Resolved]
  - Feeling abnormal [Recovered/Resolved]
  - Dizziness [Recovered/Resolved]
  - Drug dose omission [Recovered/Resolved]
  - Headache [Recovered/Resolved]
  - Balance disorder [Recovered/Resolved]

NARRATIVE: CASE EVENT DATE: 20160106
